FAERS Safety Report 5381584-6 (Version None)
Quarter: 2007Q2

REPORT INFORMATION
  Report Type: 
  Country: None (occurrence: None)
  Receive Date: 20070629
  Receipt Date: 20061221
  Transmission Date: 20071010
  Serious: Yes (Other)
  Sender: FDA-Public Use
  Company Number: 2006155675

PATIENT
  Age: 46 Year
  Sex: Female
  Weight: 108.9 kg

DRUGS (2)
  1. ZOLOFT [Suspect]
     Indication: DEPRESSION
     Dosage: 150 MG (150 MG, 1 IN 1 D); ORAL
     Route: 048
     Dates: start: 19550101
  2. METFORMIN HCL [Concomitant]

REACTIONS (1)
  - HYPERTENSION [None]
